FAERS Safety Report 7534219-8 (Version None)
Quarter: 2011Q2

REPORT INFORMATION
  Report Type: 
  Country: None (occurrence: None)
  Receive Date: 20110608
  Receipt Date: 20061214
  Transmission Date: 20111010
  Serious: Yes (Other)
  Sender: FDA-Public Use
  Company Number: PHMT2006CA02301

PATIENT
  Sex: Female

DRUGS (1)
  1. DIOVAN HCT [Suspect]
     Dosage: 160MG/25MG
     Route: 048
     Dates: start: 20000101

REACTIONS (2)
  - DIABETES MELLITUS [None]
  - BLOOD PRESSURE INCREASED [None]
